FAERS Safety Report 7292655-1 (Version None)
Quarter: 2011Q1

REPORT INFORMATION
  Report Type: 
  Country: None (occurrence: None)
  Receive Date: 20110203
  Receipt Date: 20110118
  Transmission Date: 20110831
  Serious: Yes (Death)
  Sender: FDA-Public Use
  Company Number: B0694899A

PATIENT
  Age: 20 Year
  Sex: Male

DRUGS (5)
  1. SERTRALINE (FORMULATION UNKNOWN) (GENERIC) (SERTRALINE) [Suspect]
     Dosage: ORAL
     Route: 048
  2. LAMOTRIGINE [Suspect]
     Dosage: ORAL
     Route: 048
  3. CARISOPRODOL (FORMULATION UNKNOWN) (GENERIC) (CARISOPRODOL) [Suspect]
     Dosage: ORAL
     Route: 048
  4. ANTIHISTAMINE (FORMULATION UNKNOWN) (GENERIC) (ANTIHISTAMINE) [Suspect]
     Dosage: ORAL
     Route: 048
  5. DIPHENHYDRAMINE (FORMULATION UNKNOWN) (GENERIC) (DIPHENHYDRAMINE) [Suspect]
     Dosage: ORAL
     Route: 048

REACTIONS (2)
  - COMPLETED SUICIDE [None]
  - CARDIO-RESPIRATORY ARREST [None]
